FAERS Safety Report 14474516 (Version 1)
Quarter: 2018Q1

REPORT INFORMATION
  Report Type: Spontaneous
  Country: US (occurrence: US)
  Receive Date: 20180201
  Receipt Date: 20180201
  Transmission Date: 20180509
  Serious: Yes (Other)
  Sender: FDA-Public Use
  Company Number: US-ASTELLAS-2018US005416

PATIENT
  Sex: Female

DRUGS (1)
  1. MYRBETRIQ [Suspect]
     Active Substance: MIRABEGRON
     Indication: PRODUCT USED FOR UNKNOWN INDICATION
     Route: 048
     Dates: start: 20171130, end: 20180124

REACTIONS (5)
  - Peripheral coldness [Unknown]
  - Urticaria [Unknown]
  - Hyperhidrosis [Unknown]
  - Intentional product misuse [Unknown]
  - Allergic reaction to excipient [Unknown]
